FAERS Safety Report 24604489 (Version 1)
Quarter: 2024Q4

REPORT INFORMATION
  Report Type: Report from Study
  Country: CN (occurrence: CN)
  Receive Date: 20241111
  Receipt Date: 20241111
  Transmission Date: 20250114
  Serious: Yes (Hospitalization)
  Sender: JOHNSON AND JOHNSON
  Company Number: CN-JNJFOC-20241117260

PATIENT
  Age: 77 Year
  Sex: Male
  Weight: 67 kg

DRUGS (9)
  1. ZYTIGA [Suspect]
     Active Substance: ABIRATERONE ACETATE
     Indication: Prostate cancer metastatic
     Route: 048
     Dates: start: 20201126, end: 20201223
  2. ZYTIGA [Suspect]
     Active Substance: ABIRATERONE ACETATE
     Route: 048
     Dates: start: 20201230, end: 20210118
  3. PRUXELUTAMIDE [Suspect]
     Active Substance: PRUXELUTAMIDE
     Indication: Prostate cancer metastatic
     Route: 048
     Dates: start: 20201126, end: 20201223
  4. PRUXELUTAMIDE [Suspect]
     Active Substance: PRUXELUTAMIDE
     Route: 048
     Dates: start: 20201230, end: 20210118
  5. PREDNISONE ACETATE [Suspect]
     Active Substance: PREDNISONE ACETATE
     Indication: Allergy prophylaxis
     Route: 048
     Dates: start: 20201126, end: 20201223
  6. PREDNISONE ACETATE [Suspect]
     Active Substance: PREDNISONE ACETATE
     Route: 048
     Dates: start: 20201230, end: 20210118
  7. AMLODIPINE BESYLATE AND BENAZEPRIL HYDROCHLORIDE [Concomitant]
     Active Substance: AMLODIPINE BESYLATE\BENAZEPRIL HYDROCHLORIDE
     Indication: Hypertension
     Route: 048
  8. ENTECAVIR [Concomitant]
     Active Substance: ENTECAVIR
     Indication: Hepatitis B
     Route: 048
     Dates: start: 20200926
  9. DICLOFENAC SODIUM [Concomitant]
     Active Substance: DICLOFENAC SODIUM
     Indication: Arthralgia

REACTIONS (1)
  - Gastrointestinal haemorrhage [Recovered/Resolved with Sequelae]

NARRATIVE: CASE EVENT DATE: 20210119
